FAERS Safety Report 17543831 (Version 1)
Quarter: 2020Q1

REPORT INFORMATION
  Report Type: Report from Study
  Country: US (occurrence: US)
  Receive Date: 20200316
  Receipt Date: 20200316
  Transmission Date: 20200409
  Serious: Yes (Other)
  Sender: FDA-Public Use
  Company Number: US-TEVA-2020-US-1199707

PATIENT
  Sex: Male

DRUGS (3)
  1. AUSTEDO [Suspect]
     Active Substance: DEUTETRABENAZINE
     Indication: HUNTINGTON^S DISEASE
     Dates: start: 20200123
  2. AUSTEDO [Suspect]
     Active Substance: DEUTETRABENAZINE
  3. AUSTEDO [Suspect]
     Active Substance: DEUTETRABENAZINE

REACTIONS (6)
  - Syncope [Unknown]
  - Dizziness [Unknown]
  - Somnolence [Unknown]
  - Therapeutic product effect decreased [Unknown]
  - Feeling abnormal [Unknown]
  - Hypertension [Unknown]
